FAERS Safety Report 14604801 (Version 1)
Quarter: 2018Q1

REPORT INFORMATION
  Report Type: Spontaneous
  Country: US (occurrence: US)
  Receive Date: 20180306
  Receipt Date: 20180306
  Transmission Date: 20180509
  Serious: Yes (Other)
  Sender: FDA-Public Use
  Company Number: US-PFIZER INC-2018089938

PATIENT
  Sex: Female

DRUGS (1)
  1. LYRICA [Suspect]
     Active Substance: PREGABALIN
     Dosage: UNK

REACTIONS (4)
  - Affective disorder [Recovering/Resolving]
  - Impulse-control disorder [Recovering/Resolving]
  - Intentional self-injury [Recovering/Resolving]
  - Major depression [Recovering/Resolving]
